FAERS Safety Report 4842889-8 (Version None)
Quarter: 2005Q4

REPORT INFORMATION
  Report Type: 
  Country: None (occurrence: None)
  Receive Date: 20051201
  Receipt Date: 20051118
  Transmission Date: 20060501
  Serious: Yes (Other)
  Sender: FDA-Public Use
  Company Number: PHEH2005US12762

PATIENT
  Age: 14 Year
  Sex: Male

DRUGS (2)
  1. FOCALIN XR [Suspect]
     Indication: ATTENTION DEFICIT/HYPERACTIVITY DISORDER
     Dosage: 20 MG, QD
     Route: 048
     Dates: end: 20051110
  2. FOCALIN XR [Suspect]
     Dosage: 10 MG, QD
     Route: 048
     Dates: end: 20051110

REACTIONS (3)
  - AGITATION [None]
  - DRUG INEFFECTIVE [None]
  - SUICIDAL IDEATION [None]
